FAERS Safety Report 4780775-2 (Version None)
Quarter: 2005Q3

REPORT INFORMATION
  Report Type: 
  Country: None (occurrence: None)
  Receive Date: 20050927
  Receipt Date: 20050512
  Transmission Date: 20060218
  Serious: Yes (Hospitalization, Disabling)
  Sender: FDA-Public Use
  Company Number: US-MERCK-0505USA01781

PATIENT
  Age: 44 Year
  Sex: Male
  Weight: 81 kg

DRUGS (7)
  1. VIOXX [Suspect]
     Indication: ANALGESIC EFFECT
     Route: 048
     Dates: start: 20040109, end: 20040401
  2. VIOXX [Suspect]
     Route: 048
     Dates: start: 20040223
  3. VIOXX [Suspect]
     Indication: KNEE OPERATION
     Route: 048
     Dates: start: 20040109, end: 20040401
  4. VIOXX [Suspect]
     Route: 048
     Dates: start: 20040223
  5. SULINDAC [Concomitant]
     Route: 065
  6. ULTRACET [Concomitant]
     Route: 065
  7. NALOXONE HYDROCHLORIDE AND PENTAZOCINE HYDROCHLORIDE [Concomitant]
     Route: 065

REACTIONS (5)
  - ACUTE MYOCARDIAL INFARCTION [None]
  - CORONARY ARTERY DISEASE [None]
  - HYPERCHOLESTEROLAEMIA [None]
  - HYPERTENSION [None]
  - TOOTH EXTRACTION [None]
